FAERS Safety Report 4842003-9 (Version None)
Quarter: 2005Q4

REPORT INFORMATION
  Report Type: 
  Country: None (occurrence: None)
  Receive Date: 20051130
  Receipt Date: 20051025
  Transmission Date: 20060501
  Serious: No
  Sender: FDA-Public Use
  Company Number: US-GLAXOSMITHKLINE-A0579571A

PATIENT
  Age: 60 Year
  Sex: Female

DRUGS (17)
  1. WELLBUTRIN XL [Suspect]
     Indication: ATTENTION DEFICIT/HYPERACTIVITY DISORDER
     Dosage: 150MG PER DAY
     Route: 048
     Dates: start: 20051014, end: 20051025
  2. MSM [Concomitant]
  3. GLUCOSAMINE + CHONDROITIN [Concomitant]
  4. ACCOLATE [Concomitant]
  5. CLONAZEPAM [Concomitant]
  6. PAROXETINE HCL [Concomitant]
  7. FUROSEMIDE [Concomitant]
  8. VITAMIN [Concomitant]
  9. IBUPROFEN [Concomitant]
  10. FLAXSEED OIL [Concomitant]
  11. CHROMIUM PICOLINATE [Concomitant]
  12. RESTASIS [Concomitant]
  13. FLONASE [Concomitant]
  14. ATROVENT [Concomitant]
  15. REQUIP [Concomitant]
  16. UNSPECIFIED MEDICATION [Concomitant]
  17. BENADRYL [Concomitant]

REACTIONS (6)
  - DYSPHAGIA [None]
  - PHARYNGOLARYNGEAL PAIN [None]
  - SOMNOLENCE [None]
  - SWOLLEN TONGUE [None]
  - TONGUE COATED [None]
  - TONGUE ULCERATION [None]
